FAERS Safety Report 4365823-6 (Version None)
Quarter: 2004Q2

REPORT INFORMATION
  Report Type: 
  Country: None (occurrence: None)
  Receive Date: 20040520
  Receipt Date: 20040510
  Transmission Date: 20050107
  Serious: Yes (Other)
  Sender: FDA-Public Use
  Company Number: ES-JNJFOC-20040503224

PATIENT
  Sex: Male

DRUGS (2)
  1. REMICADE [Suspect]
     Indication: ANKYLOSING SPONDYLITIS
     Dosage: SEE IMAGE
     Route: 042
     Dates: end: 20040501
  2. REMICADE [Suspect]
     Indication: ANKYLOSING SPONDYLITIS
     Dosage: SEE IMAGE
     Route: 042
     Dates: start: 20040501

REACTIONS (4)
  - FLUSHING [None]
  - INFUSION RELATED REACTION [None]
  - URTICARIA [None]
  - VOMITING [None]
